FAERS Safety Report 8351037-1 (Version None)
Quarter: 2012Q2

REPORT INFORMATION
  Report Type: 
  Country: None (occurrence: None)
  Receive Date: 20120510
  Receipt Date: 20120502
  Transmission Date: 20120825
  Serious: Yes (Hospitalization)
  Sender: FDA-Public Use
  Company Number: DK-ELI_LILLY_AND_COMPANY-DK201205001227

PATIENT
  Sex: Female
  Weight: 56 kg

DRUGS (4)
  1. ASPIRIN [Concomitant]
     Dosage: UNK, LOADING DOSE
  2. ASPIRIN [Concomitant]
     Dosage: 100 MG, QD
  3. PRASUGREL HYDROCHLORIDE [Suspect]
     Indication: ACUTE CORONARY SYNDROME
     Dosage: 60 MG, LOADING DOSE
     Dates: start: 20100422, end: 20101002
  4. PRASUGREL HYDROCHLORIDE [Suspect]
     Dosage: 5 MG, QD

REACTIONS (1)
  - ENTEROCOLITIS HAEMORRHAGIC [None]
